FAERS Safety Report 6720604-0 (Version None)
Quarter: 2010Q2

REPORT INFORMATION
  Report Type: 
  Country: None (occurrence: None)
  Receive Date: 20100510
  Receipt Date: 20100426
  Transmission Date: 20101027
  Serious: Yes (Death, Hospitalization)
  Sender: FDA-Public Use
  Company Number: 2009AC000281

PATIENT
  Age: 81 Year
  Sex: Female

DRUGS (16)
  1. DIGOXIN [Suspect]
     Dosage: 0.125 MG; QD; GT
     Dates: start: 20070701
  2. DIGOXIN [Suspect]
     Dosage: 0.125 MG; QD; PO
     Route: 048
     Dates: start: 20051222, end: 20080529
  3. TENORMIN [Concomitant]
  4. COUMADIN [Concomitant]
  5. DOXEPIN HCL [Concomitant]
  6. FOSAMAX [Concomitant]
  7. SONATA [Concomitant]
  8. CARDIZEM [Concomitant]
  9. *TYLENOL PM [Concomitant]
  10. ATENOLOL [Concomitant]
  11. LISINOPRIL [Concomitant]
  12. BUMEX [Concomitant]
  13. VANTIN [Concomitant]
  14. SINEQUA [Concomitant]
  15. DIFLUCAN [Concomitant]
  16. DIGIBIND [Concomitant]

REACTIONS (41)
  - ABNORMAL BEHAVIOUR [None]
  - ACTIVITIES OF DAILY LIVING IMPAIRED [None]
  - ACUTE PRERENAL FAILURE [None]
  - AGITATION [None]
  - ASPIRATION [None]
  - ASTHENIA [None]
  - ATRIAL FIBRILLATION [None]
  - ATRIOVENTRICULAR BLOCK [None]
  - BLISTER [None]
  - BLOOD GLUCOSE DECREASED [None]
  - BRADYCARDIA [None]
  - CARDIAC ARREST [None]
  - CARDIOMEGALY [None]
  - CHOKING SENSATION [None]
  - DEHYDRATION [None]
  - DEMENTIA [None]
  - DYSPHAGIA [None]
  - ECONOMIC PROBLEM [None]
  - FLUID RETENTION [None]
  - HALLUCINATION [None]
  - HYPERTENSION [None]
  - HYPOPHAGIA [None]
  - HYPOTENSION [None]
  - INJURY [None]
  - INSOMNIA [None]
  - INTERNATIONAL NORMALISED RATIO INCREASED [None]
  - MULTIPLE INJURIES [None]
  - OEDEMA [None]
  - PCO2 INCREASED [None]
  - PLEURAL EFFUSION [None]
  - POST PROCEDURAL HAEMATOMA [None]
  - PROTEIN TOTAL INCREASED [None]
  - PROTHROMBIN TIME PROLONGED [None]
  - RENAL FAILURE ACUTE [None]
  - RESPIRATORY FAILURE [None]
  - SURGERY [None]
  - THERAPEUTIC AGENT TOXICITY [None]
  - THYROID NEOPLASM [None]
  - UNEVALUABLE EVENT [None]
  - URINARY TRACT INFECTION [None]
  - URINARY TRACT INFECTION FUNGAL [None]
